FAERS Safety Report 18121574 (Version 1)
Quarter: 2020Q3

REPORT INFORMATION
  Report Type: Spontaneous
  Country: US (occurrence: US)
  Receive Date: 20200806
  Receipt Date: 20200806
  Transmission Date: 20201103
  Serious: No
  Sender: FDA-Public Use
  Company Number: US-ASSERTIO THERAPEUTICS, INC.-US-2020DEP000192

PATIENT
  Sex: Female

DRUGS (1)
  1. CAMBIA [Suspect]
     Active Substance: DICLOFENAC POTASSIUM
     Indication: MIGRAINE WITHOUT AURA
     Dosage: MIX 1 PACK WITH 1?2 OUNCES OF WATER AND DRINK AT ONSET OF HEADACHE
     Route: 048

REACTIONS (2)
  - Product use in unapproved indication [Unknown]
  - Product colour issue [Unknown]
